FAERS Safety Report 6750393-5 (Version None)
Quarter: 2010Q2

REPORT INFORMATION
  Report Type: 
  Country: None (occurrence: None)
  Receive Date: 20100601
  Receipt Date: 20100517
  Transmission Date: 20101027
  Serious: Yes (Hospitalization)
  Sender: FDA-Public Use
  Company Number: FR-ALLERGAN-1007056US

PATIENT
  Age: 89 Year
  Sex: Female

DRUGS (13)
  1. TROSPIUM CHLORIDE UNK [Suspect]
     Indication: URINARY INCONTINENCE
     Route: 048
  2. KEPPRA [Suspect]
     Indication: EPILEPSY
     Route: 048
  3. EFFEXOR [Suspect]
     Indication: ANXIETY
     Route: 048
  4. LAMALINE [Suspect]
     Route: 048
  5. LEVOTHYROXINE SODIUM [Concomitant]
  6. TAHOR [Concomitant]
  7. TAREG [Concomitant]
  8. CALCIT D3 [Concomitant]
  9. CORDARONE [Concomitant]
  10. NEXIUM [Concomitant]
  11. COUMADIN [Concomitant]
  12. TARDYFERON [Concomitant]
  13. KARDEGIC [Concomitant]

REACTIONS (1)
  - CONFUSIONAL STATE [None]
